FAERS Safety Report 21677780 (Version 8)
Quarter: 2023Q2

REPORT INFORMATION
  Report Type: Report from Study
  Country: US (occurrence: US)
  Receive Date: 20221203
  Receipt Date: 20230619
  Transmission Date: 20230722
  Serious: No
  Sender: FDA-Public Use
  Company Number: US-002147023-NVSC2022US281237

PATIENT
  Sex: Female

DRUGS (1)
  1. COSENTYX [Suspect]
     Active Substance: SECUKINUMAB
     Indication: Ankylosing spondylitis
     Dosage: UNK
     Route: 065

REACTIONS (9)
  - Peripheral swelling [Unknown]
  - Inflammation [Not Recovered/Not Resolved]
  - Sciatica [Unknown]
  - Pain in extremity [Unknown]
  - Limb discomfort [Unknown]
  - Foot deformity [Unknown]
  - Erythema [Unknown]
  - Arthritis [Unknown]
  - Nasopharyngitis [Unknown]
